FAERS Safety Report 4380375-2 (Version None)
Quarter: 2004Q2

REPORT INFORMATION
  Report Type: 
  Country: None (occurrence: None)
  Receive Date: 20040614
  Receipt Date: 20040601
  Transmission Date: 20050107
  Serious: Yes (Hospitalization)
  Sender: FDA-Public Use
  Company Number: ZONI001441

PATIENT
  Age: 56 Year
  Sex: Female

DRUGS (2)
  1. EXCEGRAN (ZONISAMIDE) [Suspect]
     Indication: TRIGEMINAL NEURALGIA
     Dosage: 300 MG DAILY ORAL
     Route: 048
     Dates: start: 20040330, end: 20040428
  2. ALEVIATIN (PHENYTOIN SODIUM) [Suspect]
     Indication: TRIGEMINAL NEURALGIA
     Dosage: 300 MG DAILY ORAL
     Route: 048
     Dates: start: 20040330, end: 20040428

REACTIONS (3)
  - PIGMENTATION DISORDER [None]
  - RASH ERYTHEMATOUS [None]
  - RASH GENERALISED [None]
